FAERS Safety Report 18081737 (Version 10)
Quarter: 2021Q4

REPORT INFORMATION
  Report Type: Report from Study
  Country: AR (occurrence: AR)
  Receive Date: 20200728
  Receipt Date: 20211004
  Transmission Date: 20220303
  Serious: Yes (Hospitalization, Other)
  Sender: FDA-Public Use
  Company Number: AR-002147023-NVSC2020AR193212

PATIENT

DRUGS (5)
  1. RUXOLITINIB [Suspect]
     Active Substance: RUXOLITINIB
     Indication: Myelofibrosis
     Dosage: 20 MG, BID
     Route: 048
     Dates: start: 2018
  2. RUXOLITINIB [Suspect]
     Active Substance: RUXOLITINIB
     Dosage: 20 MG, QD (STARTED SINCE 4 OR 5 YEARS AGO APPROXIMATELY)
     Route: 048
  3. RUXOLITINIB [Suspect]
     Active Substance: RUXOLITINIB
     Dosage: 40 MG, BID
     Route: 048
     Dates: start: 20180715
  4. RUXOLITINIB [Suspect]
     Active Substance: RUXOLITINIB
     Dosage: 40 MG, QD
     Route: 048
     Dates: start: 20180715
  5. RUXOLITINIB [Suspect]
     Active Substance: RUXOLITINIB
     Dosage: 40 MG, BID
     Route: 048

REACTIONS (19)
  - Anaemia [Unknown]
  - Eating disorder [Unknown]
  - Depressed mood [Unknown]
  - White blood cell count decreased [Unknown]
  - Dehydration [Unknown]
  - Gait disturbance [Unknown]
  - Speech disorder [Unknown]
  - Haematocrit abnormal [Unknown]
  - Pruritus [Recovered/Resolved]
  - Inappropriate schedule of product administration [Unknown]
  - Renal disorder [Unknown]
  - Drug ineffective [Unknown]
  - Pain [Unknown]
  - Pleural disorder [Unknown]
  - Dyspnoea [Unknown]
  - Sensitisation [Not Recovered/Not Resolved]
  - Splenomegaly [Unknown]
  - Incorrect dose administered [Unknown]
  - Product supply issue [Unknown]

NARRATIVE: CASE EVENT DATE: 20180715
